FAERS Safety Report 16002301 (Version 1)
Quarter: 2019Q1

REPORT INFORMATION
  Report Type: Spontaneous
  Country: US (occurrence: US)
  Receive Date: 20190225
  Receipt Date: 20190225
  Transmission Date: 20190418
  Serious: No
  Sender: FDA-Public Use
  Company Number: US-BAUSCH-BL-2019-004368

PATIENT
  Age: 89 Year
  Sex: Female
  Weight: 67.65 kg

DRUGS (2)
  1. REFRESH TEARS [Concomitant]
     Active Substance: CARBOXYMETHYLCELLULOSE SODIUM
     Indication: PRODUCT USED FOR UNKNOWN INDICATION
     Route: 047
  2. DORZOLAMIDE HYDROCHLORIDE. [Suspect]
     Active Substance: DORZOLAMIDE HYDROCHLORIDE
     Indication: OPEN ANGLE GLAUCOMA
     Dosage: 1 DROP IN BOTH EYES TWICE DAILY
     Route: 047
     Dates: start: 20190205

REACTIONS (2)
  - Condition aggravated [Unknown]
  - Breast pain [Unknown]

NARRATIVE: CASE EVENT DATE: 201902
